FAERS Safety Report 10952044 (Version 1)
Quarter: 2015Q1

REPORT INFORMATION
  Report Type: Spontaneous
  Country: US (occurrence: None)
  Receive Date: 20150324
  Receipt Date: 20150324
  Transmission Date: 20150721
  Serious: Yes (Death)
  Sender: FDA-Public Use
  Company Number: None

PATIENT
  Age: 61 Year
  Sex: Female
  Weight: 57.6 kg

DRUGS (3)
  1. AVASTIN [Concomitant]
     Active Substance: BEVACIZUMAB
  2. TEMODAR [Suspect]
     Active Substance: TEMOZOLOMIDE
     Indication: BREAST CANCER METASTATIC
     Dosage: 1 CAPULE OF 140 MG + 1 X 20 MG
     Route: 048
     Dates: start: 20141222, end: 20150127
  3. TEMODAR [Suspect]
     Active Substance: TEMOZOLOMIDE
     Indication: METASTASES TO CENTRAL NERVOUS SYSTEM
     Dosage: 1 CAPULE OF 140 MG + 1 X 20 MG
     Route: 048
     Dates: start: 20141222, end: 20150127

REACTIONS (8)
  - Hepatic necrosis [None]
  - Cholestasis [None]
  - Pancreatitis [None]
  - Renal atrophy [None]
  - Hepatomegaly [None]
  - Cholelithiasis [None]
  - Abdominal adhesions [None]
  - Ovarian cyst [None]

NARRATIVE: CASE EVENT DATE: 20150215
